FAERS Safety Report 6998538-6 (Version None)
Quarter: 2010Q3

REPORT INFORMATION
  Report Type: 
  Country: None (occurrence: None)
  Receive Date: 20100920
  Receipt Date: 20090721
  Transmission Date: 20110219
  Serious: Yes (Other)
  Sender: FDA-Public Use
  Company Number: US-ASTRAZENECA-2007UW05350

PATIENT
  Age: 14091 Day
  Sex: Male

DRUGS (4)
  1. SEROQUEL [Suspect]
     Route: 048
     Dates: start: 20050330
  2. DEPAKOTE ER [Concomitant]
     Dosage: 250 TO 1500 MG
     Route: 048
     Dates: start: 20050330
  3. HALOPERIDOL [Concomitant]
     Route: 048
     Dates: start: 20050330
  4. BENZOTROPINE MES [Concomitant]
     Route: 048
     Dates: start: 20050516

REACTIONS (3)
  - KETOACIDOSIS [None]
  - PANCREATITIS [None]
  - TYPE 2 DIABETES MELLITUS [None]
